FAERS Safety Report 6243107-9 (Version None)
Quarter: 2009Q2

REPORT INFORMATION
  Report Type: 
  Country: None (occurrence: None)
  Receive Date: 20090617
  Receipt Date: 20080523
  Transmission Date: 20091009
  Serious: No
  Sender: FDA-Public Use
  Company Number: 275637

PATIENT
  Age: 47 Year
  Sex: Male

DRUGS (8)
  1. LEVEMIR [Suspect]
     Indication: INSULIN-REQUIRING TYPE 2 DIABETES MELLITUS
     Dosage: 18-30 IU, SUBCUTANEOUS
     Route: 058
     Dates: start: 20080401, end: 20080516
  2. HUMULIN R [Concomitant]
  3. LASIX [Concomitant]
  4. COUMADIN [Concomitant]
  5. LIPITOR [Concomitant]
  6. VASODEX (DEXAMETHASONE SODIUM SUCCINATE, PHENYLEPHRINE HYDROCHLORIDE) [Concomitant]
  7. ASPIRIN [Concomitant]
  8. MULTIVITAMIN /00831701/ (VITAMINS NOS) [Concomitant]

REACTIONS (3)
  - ABDOMINAL DISTENSION [None]
  - BLOOD GLUCOSE INCREASED [None]
  - WEIGHT INCREASED [None]
